FAERS Safety Report 4373092-6 (Version None)
Quarter: 2004Q2

REPORT INFORMATION
  Report Type: 
  Country: None (occurrence: None)
  Receive Date: 20040526
  Receipt Date: 20040513
  Transmission Date: 20050107
  Serious: Yes (Hospitalization, Other)
  Sender: FDA-Public Use
  Company Number: 2004015659

PATIENT
  Age: 39 Year
  Sex: Male
  Weight: 73 kg

DRUGS (5)
  1. VIAGRA [Suspect]
     Indication: ERECTILE DYSFUNCTION
     Dosage: 80 MG , ORAL
     Route: 048
     Dates: end: 20030417
  2. NIFEDIPINE (NEFIDIPINE) [Suspect]
     Indication: HYPERTENSION
     Dosage: 120 MG (3 IN 1 D), ORAL
     Route: 048
     Dates: end: 20030417
  3. TRIPAMIDE (TRIPAMIDE) [Concomitant]
  4. NADOLOL [Concomitant]
  5. TRIAZOLAM (TRAIZOLAM) [Concomitant]

REACTIONS (16)
  - BLOOD PRESSURE SYSTOLIC INCREASED [None]
  - BRAIN STEM INFARCTION [None]
  - CARDIOMEGALY [None]
  - CEREBRAL THROMBOSIS [None]
  - CEREBROVASCULAR STENOSIS [None]
  - COLD SWEAT [None]
  - DIZZINESS [None]
  - DYSSTASIA [None]
  - GAMMA-GLUTAMYLTRANSFERASE INCREASED [None]
  - HAEMATOCRIT INCREASED [None]
  - HAEMOGLOBIN INCREASED [None]
  - HEAD DISCOMFORT [None]
  - LACUNAR INFARCTION [None]
  - SELF-MEDICATION [None]
  - SENSORY DISTURBANCE [None]
  - TRANSIENT ISCHAEMIC ATTACK [None]
